FAERS Safety Report 5018869-9 (Version None)
Quarter: 2006Q2

REPORT INFORMATION
  Report Type: 
  Country: None (occurrence: None)
  Receive Date: 20060530
  Receipt Date: 20050720
  Transmission Date: 20061013
  Serious: Yes (Hospitalization)
  Sender: FDA-Public Use
  Company Number: 2005105271

PATIENT
  Age: 83 Year
  Sex: Female
  Weight: 55 kg

DRUGS (7)
  1. LYRICA [Suspect]
     Indication: FIBROMYALGIA
     Dosage: 50 MG (25 MG, 2 IN 1 D), ORAL
     Route: 048
     Dates: start: 20050705, end: 20050711
  2. LYRICA [Suspect]
     Indication: PAIN
     Dosage: 50 MG (25 MG, 2 IN 1 D), ORAL
     Route: 048
     Dates: start: 20050705, end: 20050711
  3. WARFARIN (WARFARIN) [Concomitant]
  4. FUROSEMIDE [Concomitant]
  5. RABEPRAZOLE (RABEPRAZOLE) [Concomitant]
  6. DIPYRIDAMOLE [Concomitant]
  7. AMITRIPTYLINE HCL [Concomitant]

REACTIONS (5)
  - CONFUSIONAL STATE [None]
  - EPILEPSY [None]
  - MUSCLE TWITCHING [None]
  - SOMNOLENCE [None]
  - URINARY TRACT INFECTION [None]
